FAERS Safety Report 9915631 (Version 1)
Quarter: 2014Q1

REPORT INFORMATION
  Report Type: Spontaneous
  Country: GB (occurrence: None)
  Receive Date: 20140218
  Receipt Date: 20140218
  Transmission Date: 20141002
  Serious: Yes (Life-Threatening, Hospitalization)
  Sender: FDA-Public Use
  Company Number: AUR-APL-2014-01540

PATIENT
  Age: 74 Year
  Sex: Male

DRUGS (5)
  1. CLOPIDOGREL (CLOPIDOGREL) [Suspect]
     Indication: ACUTE CORONARY SYNDROME
     Route: 048
     Dates: start: 20140114, end: 20140117
  2. ASPIRIN (ACETYLSALICYLIC ACID [Concomitant]
  3. ISOSORBIDE MONONITRATE (ISOSORBIDE MONONITRATE) [Concomitant]
  4. LANSOPRAZOLE (LANSOPRAZOLE) [Concomitant]
  5. PRVASTATIN (PRAVASTATIN) [Concomitant]

REACTIONS (2)
  - Neutropenia [None]
  - White blood cell count decreased [None]
